FAERS Safety Report 5945898-0 (Version None)
Quarter: 2008Q4

REPORT INFORMATION
  Report Type: 
  Country: None (occurrence: None)
  Receive Date: 20081106
  Receipt Date: 20081023
  Transmission Date: 20090506
  Serious: Yes (Hospitalization)
  Sender: FDA-Public Use
  Company Number: URSO-2008-136

PATIENT
  Age: 30 Year
  Sex: Female

DRUGS (1)
  1. URSO 250 [Suspect]
     Indication: BILIARY CIRRHOSIS PRIMARY
     Dosage: ORAL
     Route: 048

REACTIONS (4)
  - CONDITION AGGRAVATED [None]
  - HEPATIC ENZYME INCREASED [None]
  - PREMATURE RUPTURE OF MEMBRANES [None]
  - THREATENED LABOUR [None]
